FAERS Safety Report 20056984 (Version 1)
Quarter: 2021Q4

REPORT INFORMATION
  Report Type: Spontaneous
  Country: US (occurrence: None)
  Receive Date: 20211111
  Receipt Date: 20211111
  Transmission Date: 20220304
  Serious: Yes (Other)
  Sender: FDA-Public Use
  Company Number: US-Hikma Pharmaceuticals-US-H14001-21-04774

PATIENT
  Age: 55 Year
  Sex: Female

DRUGS (2)
  1. METHYLPREDNISOLONE [Suspect]
     Active Substance: METHYLPREDNISOLONE
     Indication: Hypercapnia
     Dosage: UNKNOWN
     Route: 065
  2. METHYLPREDNISOLONE [Suspect]
     Active Substance: METHYLPREDNISOLONE
     Indication: Condition aggravated

REACTIONS (2)
  - Metabolic acidosis [Recovering/Resolving]
  - Euglycaemic diabetic ketoacidosis [Unknown]
